FAERS Safety Report 21625722 (Version 1)
Quarter: 2022Q4

REPORT INFORMATION
  Report Type: Spontaneous
  Country: PL (occurrence: PL)
  Receive Date: 20221122
  Receipt Date: 20221122
  Transmission Date: 20230113
  Serious: Yes (Other)
  Sender: FDA-Public Use
  Company Number: PL-Merck Healthcare KGaA-9344207

PATIENT
  Age: 55 Year
  Sex: Male

DRUGS (38)
  1. IRINOTECAN [Suspect]
     Active Substance: IRINOTECAN
     Indication: Colorectal cancer metastatic
     Dosage: 331 MILLIGRAM/SQ. METER
     Route: 065
     Dates: start: 20200414
  2. IRINOTECAN [Suspect]
     Active Substance: IRINOTECAN
     Dosage: 334 MILLIGRAM/SQ. METER
     Route: 065
     Dates: start: 20200429
  3. IRINOTECAN [Suspect]
     Active Substance: IRINOTECAN
     Dosage: 336 MILLIGRAM/SQ. METER
     Route: 065
     Dates: start: 20200302
  4. IRINOTECAN [Suspect]
     Active Substance: IRINOTECAN
     Dosage: 333 MILLIGRAM/SQ. METER
     Route: 065
     Dates: start: 20200527
  5. IRINOTECAN [Suspect]
     Active Substance: IRINOTECAN
     Dosage: 180 MILLIGRAM/SQ. METER
     Route: 065
     Dates: start: 20200624
  6. CETUXIMAB [Suspect]
     Active Substance: CETUXIMAB
     Indication: Colorectal cancer metastatic
     Dosage: 925 MILLIGRAM/SQ. METER
     Route: 065
     Dates: start: 20200527
  7. CETUXIMAB [Suspect]
     Active Substance: CETUXIMAB
     Dosage: 500 MILLIGRAM/SQ. METER
     Route: 065
     Dates: start: 20200610, end: 20200916
  8. CETUXIMAB [Suspect]
     Active Substance: CETUXIMAB
     Dosage: 920 MILLIGRAM/SQ. METER
     Route: 065
     Dates: start: 20200414
  9. CETUXIMAB [Suspect]
     Active Substance: CETUXIMAB
     Dosage: 935 MILLIGRAM/SQ. METER
     Route: 065
     Dates: start: 20200302
  10. CETUXIMAB [Suspect]
     Active Substance: CETUXIMAB
     Dosage: 930 MILLIGRAM/SQ. METER
     Route: 065
     Dates: start: 20200429
  11. FLUOROURACIL [Suspect]
     Active Substance: FLUOROURACIL
     Indication: Colorectal cancer metastatic
     Dosage: 1000 MILLIGRAM/SQ. METER
     Route: 065
     Dates: start: 20200916
  12. FLUOROURACIL [Suspect]
     Active Substance: FLUOROURACIL
     Dosage: 3740 MILLIGRAM/SQ. METER
     Route: 065
     Dates: start: 20200302
  13. FLUOROURACIL [Suspect]
     Active Substance: FLUOROURACIL
     Dosage: 3700 MILLIGRAM/SQ. METER
     Route: 065
     Dates: start: 20200527
  14. FLUOROURACIL [Suspect]
     Active Substance: FLUOROURACIL
     Dosage: 2000 MILLIGRAM/SQ. METER
     Route: 065
     Dates: start: 20200610
  15. FLUOROURACIL [Suspect]
     Active Substance: FLUOROURACIL
     Dosage: 3680 MILLIGRAM/SQ. METER
     Route: 065
     Dates: start: 20200414
  16. FLUOROURACIL [Suspect]
     Active Substance: FLUOROURACIL
     Dosage: 3720 MILLIGRAM/SQ. METER
     Route: 065
     Dates: start: 20200429
  17. LEUCOVORIN [Suspect]
     Active Substance: LEUCOVORIN
     Indication: Colorectal cancer metastatic
     Dosage: 100 MILLIGRAM/SQ. METER
     Dates: start: 20200916
  18. LEUCOVORIN [Suspect]
     Active Substance: LEUCOVORIN
     Dosage: 372 MILLIGRAM/SQ. METER
     Route: 065
     Dates: start: 20200429
  19. LEUCOVORIN [Suspect]
     Active Substance: LEUCOVORIN
     Dosage: 370 MILLIGRAM/SQ. METER
     Route: 065
     Dates: start: 20200527
  20. LEUCOVORIN [Suspect]
     Active Substance: LEUCOVORIN
     Dosage: 374 MILLIGRAM/SQ. METER
     Route: 065
     Dates: start: 20200302
  21. LEUCOVORIN [Suspect]
     Active Substance: LEUCOVORIN
     Dosage: 200 MILLIGRAM/SQ. METER
     Route: 065
     Dates: start: 20200610
  22. LEUCOVORIN [Suspect]
     Active Substance: LEUCOVORIN
     Dosage: 368 MILLIGRAM/SQ. METER
     Route: 065
     Dates: start: 20200414
  23. Doxycyclinum [Concomitant]
     Indication: Product used for unknown indication
     Dosage: UNK
     Route: 065
     Dates: start: 20200513
  24. AMOXICILLIN [Concomitant]
     Active Substance: AMOXICILLIN
     Indication: Product used for unknown indication
     Dosage: UNK
     Route: 065
     Dates: start: 20200330
  25. ROZEX (METRONIDAZOLE) [Concomitant]
     Active Substance: METRONIDAZOLE
     Indication: Product used for unknown indication
     Dosage: UNK
     Route: 065
     Dates: start: 20200724
  26. ADATAM [Concomitant]
     Indication: Product used for unknown indication
     Dosage: UNK
     Route: 065
     Dates: start: 20200807
  27. ACETAMINOPHEN\TRAMADOL HYDROCHLORIDE [Concomitant]
     Active Substance: ACETAMINOPHEN\TRAMADOL HYDROCHLORIDE
     Indication: Product used for unknown indication
     Dosage: UNK
     Route: 065
     Dates: start: 20200304
  28. GRANULOCYTE COLONY-STIMULATING FACTOR NOS [Concomitant]
     Active Substance: GRANULOCYTE COLONY-STIMULATING FACTOR NOS
     Indication: Product used for unknown indication
     Dosage: UNK
     Route: 065
     Dates: start: 20200708
  29. CIPROFLOXACIN [Concomitant]
     Active Substance: CIPROFLOXACIN
     Indication: Product used for unknown indication
     Dosage: UNK
     Route: 065
     Dates: start: 20200330
  30. SCOPOLAN [Concomitant]
     Indication: Product used for unknown indication
     Dosage: UNK
     Route: 065
     Dates: start: 20200805
  31. ENOXAPARIN SODIUM [Concomitant]
     Active Substance: ENOXAPARIN SODIUM
     Indication: Embolism venous
     Dosage: UNK
     Route: 065
     Dates: start: 20200304
  32. BUPRENORPHINE [Concomitant]
     Active Substance: BUPRENORPHINE
     Indication: Product used for unknown indication
     Dosage: UNK(35 PATCH)
     Route: 065
     Dates: start: 20200515
  33. DOXYCYCLINE [Concomitant]
     Active Substance: DOXYCYCLINE
     Indication: Product used for unknown indication
     Dosage: UNK
     Route: 065
     Dates: start: 20200515
  34. FILGRASTIM [Concomitant]
     Active Substance: FILGRASTIM
     Indication: Product used for unknown indication
     Dosage: UNK
     Route: 065
     Dates: start: 20200415
  35. PEGFILGRASTIM [Concomitant]
     Active Substance: PEGFILGRASTIM
     Indication: Product used for unknown indication
     Dosage: UNK
     Route: 065
     Dates: start: 20200527
  36. FILGRASTIM [Concomitant]
     Active Substance: FILGRASTIM
     Indication: Product used for unknown indication
     Dosage: UNK
     Route: 065
     Dates: start: 20200610
  37. Metoclopramidum [Concomitant]
     Indication: Product used for unknown indication
     Dosage: UNK
     Route: 065
     Dates: start: 20200304
  38. FURAZIDINE [Concomitant]
     Active Substance: FURAZIDINE
     Indication: Product used for unknown indication
     Dosage: UNK(2 TABLETS)
     Route: 065
     Dates: start: 20200807

REACTIONS (3)
  - Hydronephrosis [Recovered/Resolved]
  - Renal failure [Recovered/Resolved]
  - Off label use [Unknown]

NARRATIVE: CASE EVENT DATE: 20200930
